FAERS Safety Report 12269950 (Version 1)
Quarter: 2016Q2

REPORT INFORMATION
  Report Type: Spontaneous
  Country: MA (occurrence: MA)
  Receive Date: 20160415
  Receipt Date: 20160415
  Transmission Date: 20160815
  Serious: Yes (Other)
  Sender: FDA-Public Use
  Company Number: MA-HOSPIRA-3241120

PATIENT
  Age: 62 Year
  Sex: Female

DRUGS (1)
  1. DOCETAXEL HOSPIRA [Suspect]
     Active Substance: DOCETAXEL
     Indication: CHEMOTHERAPY

REACTIONS (3)
  - Mucosal inflammation [Unknown]
  - Febrile neutropenia [Unknown]
  - Skin lesion [Unknown]

NARRATIVE: CASE EVENT DATE: 201505
